FAERS Safety Report 9280644 (Version 1)
Quarter: 2013Q2

REPORT INFORMATION
  Report Type: Spontaneous
  Country: US (occurrence: US)
  Receive Date: 20130509
  Receipt Date: 20130509
  Transmission Date: 20140414
  Serious: No
  Sender: FDA-Public Use
  Company Number: US-PFIZER INC-2013142126

PATIENT
  Age: 40 Year
  Sex: Female
  Weight: 58.96 kg

DRUGS (5)
  1. FLECTOR [Suspect]
     Indication: MYOSITIS
     Dosage: UNK
     Dates: start: 20130425, end: 20130503
  2. LAMOTRIGINE [Concomitant]
     Dosage: UNK
  3. TRAMADOL [Concomitant]
     Dosage: UNK
  4. CLARITIN [Concomitant]
     Dosage: UNK
  5. PSEUDOEPHEDRINE HYDROCHLORIDE [Concomitant]
     Dosage: UNK, AS NEEDED

REACTIONS (1)
  - Chromaturia [Recovered/Resolved]
